FAERS Safety Report 24207596 (Version 1)
Quarter: 2024Q3

REPORT INFORMATION
  Report Type: Spontaneous
  Country: DE (occurrence: DE)
  Receive Date: 20240814
  Receipt Date: 20240814
  Transmission Date: 20241017
  Serious: Yes (Congenital Anomaly)
  Sender: GLAXOSMITHKLINE
  Company Number: None

PATIENT

DRUGS (8)
  1. ALBUTEROL [Suspect]
     Active Substance: ALBUTEROL
     Indication: Cystic fibrosis
     Dosage: 11 GTT, QD
     Route: 064
     Dates: start: 20230130, end: 20231008
  2. ELEXACAFTOR\IVACAFTOR\TEZACAFTOR [Suspect]
     Active Substance: ELEXACAFTOR\IVACAFTOR\TEZACAFTOR
     Indication: Cystic fibrosis
     Dosage: UNTIL GW 4+3, THEN PAUSED, RESTART FROM GW 6+5 UNTIL GW 22: 1 TABL/D, THEN 2 TABL/D
     Route: 064
     Dates: start: 20230130, end: 20231008
  3. BOOSTRIX [Concomitant]
     Active Substance: TETANUS TOXOID, REDUCED DIPHTHERIA TOXOID AND ACELLULAR PERTUSSIS VACCINE, ADSORBED ANTIGENS
     Indication: Immunisation
     Dosage: UNK
     Route: 064
     Dates: start: 20230921, end: 20230921
  4. CIMZIA [Concomitant]
     Active Substance: CERTOLIZUMAB PEGOL
     Indication: Rheumatoid arthritis
     Dosage: 200 MG, Q2W
     Route: 064
     Dates: start: 20230130, end: 20230304
  5. PANCRELIPASE [Concomitant]
     Active Substance: PANCRELIPASE
     Indication: Cystic fibrosis
     Dosage: 375000 [E./D ]/12-15 TABLETS/D=300,000-375,000 UNITS/D
     Route: 064
     Dates: start: 20230130, end: 20231008
  6. Mucoclear [Concomitant]
     Indication: Cystic fibrosis
     Dosage: UNK, MORNING + EVENING: 4 ML 6% AND 2.5 ML 0.9%
     Route: 064
     Dates: start: 20230130, end: 20231008
  7. ACTRAPID [Concomitant]
     Active Substance: INSULIN HUMAN
     Indication: Gestational diabetes
     Dosage: UNK, TAKEN AS NEEDED
     Route: 064
     Dates: start: 20230710, end: 20231008
  8. CEFUROXIME [Concomitant]
     Active Substance: CEFUROXIME
     Indication: Infection
     Dosage: 1000 MG, QD
     Route: 064
     Dates: start: 20230722, end: 20230805

REACTIONS (2)
  - Atrial septal defect [Not Recovered/Not Resolved]
  - Foetal exposure during pregnancy [Unknown]
